FAERS Safety Report 7964162 (Version 3)
Quarter: 2013Q1

REPORT INFORMATION
  Report Type: Spontaneous
  Country: MX (occurrence: MX)
  Receive Date: 20110527
  Receipt Date: 20130321
  Transmission Date: 20140127
  Serious: Yes (Death)
  Sender: FDA-Public Use
  Company Number: PHHY2011MX44660

PATIENT
  Age: 82 Year
  Sex: Female

DRUGS (1)
  1. EXELON [Suspect]
     Indication: PARKINSON^S DISEASE
     Dosage: 4.5 MG, DAILY
     Route: 062
     Dates: start: 20110420

REACTIONS (1)
  - Death [Fatal]
